FAERS Safety Report 8163976-5 (Version None)
Quarter: 2012Q1

REPORT INFORMATION
  Report Type: 
  Country: None (occurrence: None)
  Receive Date: 20120224
  Receipt Date: 20120215
  Transmission Date: 20120608
  Serious: Yes (Hospitalization)
  Sender: FDA-Public Use
  Company Number: US-ACTELION-A-NJ2012-61313

PATIENT

DRUGS (1)
  1. EPOPROSTENOL SODIUM [Suspect]
     Indication: PULMONARY ARTERIAL HYPERTENSION
     Dosage: 40 NG/KG, PER MIN
     Route: 041
     Dates: start: 20110525

REACTIONS (3)
  - CATHETER SITE RASH [None]
  - TROPONIN INCREASED [None]
  - DYSPNOEA [None]
